FAERS Safety Report 4854956-3 (Version None)
Quarter: 2005Q4

REPORT INFORMATION
  Report Type: 
  Country: None (occurrence: None)
  Receive Date: 20051214
  Receipt Date: 20051206
  Transmission Date: 20060501
  Serious: Yes (Hospitalization)
  Sender: FDA-Public Use
  Company Number: 108219ISR

PATIENT
  Age: 55 Year
  Sex: Female

DRUGS (6)
  1. FLUCONAZOLE [Suspect]
     Indication: CANDIDIASIS
     Dosage: 150 MILLIGRAM
     Dates: start: 20051102, end: 20051102
  2. PAROXETINE HCL [Suspect]
     Dosage: 10 MILLIGRAM
  3. FOLIC ACID [Concomitant]
  4. HYDROXYZINE HYDROCHLORIDE [Concomitant]
  5. RENAGEL (SEVELAMER) [Concomitant]
  6. NITRAZEPAM [Concomitant]

REACTIONS (2)
  - ABASIA [None]
  - TENDONITIS [None]
